FAERS Safety Report 17388705 (Version 1)
Quarter: 2020Q1

REPORT INFORMATION
  Report Type: Spontaneous
  Country: US (occurrence: US)
  Receive Date: 20200207
  Receipt Date: 20200207
  Transmission Date: 20200409
  Serious: Yes (Disabling)
  Sender: FDA-Public Use
  Company Number: US-ASTRAZENECA-2020SE18060

PATIENT
  Age: 62 Year
  Sex: Female
  Weight: 56.7 kg

DRUGS (6)
  1. SYMBICORT [Suspect]
     Active Substance: BUDESONIDE\FORMOTEROL FUMARATE DIHYDRATE
     Indication: CHRONIC OBSTRUCTIVE PULMONARY DISEASE
     Dosage: 2 PUFFS TWO TIMES A DAY
     Route: 055
     Dates: start: 2015
  2. SYMBICORT [Suspect]
     Active Substance: BUDESONIDE\FORMOTEROL FUMARATE DIHYDRATE
     Indication: ASTHMA
     Dosage: 2 PUFFS ONCE A DAY OR AS NEEDED
     Route: 055
  3. SYMBICORT [Suspect]
     Active Substance: BUDESONIDE\FORMOTEROL FUMARATE DIHYDRATE
     Indication: ASTHMA
     Dosage: 2 PUFFS TWO TIMES A DAY
     Route: 055
     Dates: start: 2015
  4. IPRATROPIUM BROMIDE. [Concomitant]
     Active Substance: IPRATROPIUM BROMIDE
     Indication: SUPPLEMENTATION THERAPY
     Dosage: AS REQUIRED
     Route: 055
  5. SYMBICORT [Suspect]
     Active Substance: BUDESONIDE\FORMOTEROL FUMARATE DIHYDRATE
     Indication: CHRONIC OBSTRUCTIVE PULMONARY DISEASE
     Dosage: 2 PUFFS ONCE A DAY OR AS NEEDED
     Route: 055
  6. ALBUTEROL. [Concomitant]
     Active Substance: ALBUTEROL
     Indication: SUPPLEMENTATION THERAPY
     Dosage: AS REQUIRED
     Route: 055

REACTIONS (4)
  - Wrong technique in device usage process [Unknown]
  - Intentional product misuse [Unknown]
  - Multiple sclerosis [Unknown]
  - Asthma [Unknown]
